FAERS Safety Report 22141640 (Version 2)
Quarter: 2023Q1

REPORT INFORMATION
  Report Type: Spontaneous
  Country: CN (occurrence: CN)
  Receive Date: 20230327
  Receipt Date: 20230329
  Transmission Date: 20230418
  Serious: Yes (Other)
  Sender: FDA-Public Use
  Company Number: CN-BEH-2023156673

PATIENT
  Age: 64 Year
  Sex: Female

DRUGS (7)
  1. ALBURX [Suspect]
     Active Substance: ALBUMIN HUMAN
     Indication: Hypoproteinaemia
     Dosage: 50 MILLILITER, OD
     Route: 041
     Dates: start: 20221216, end: 20221219
  2. CEFOPERAZONE SODIUM\SULBACTAM SODIUM [Suspect]
     Active Substance: CEFOPERAZONE SODIUM\SULBACTAM SODIUM
     Indication: Pneumonia
     Dosage: 2 GRAM, BIW
     Route: 041
     Dates: start: 20221218, end: 20221221
  3. CEFOPERAZONE SODIUM\SULBACTAM SODIUM [Suspect]
     Active Substance: CEFOPERAZONE SODIUM\SULBACTAM SODIUM
     Indication: Pseudomonas infection
  4. AMBROXOL HYDROCHLORIDE [Suspect]
     Active Substance: AMBROXOL HYDROCHLORIDE
     Indication: Pneumonia
     Dosage: 30 MILLIGRAM, TID
     Route: 045
     Dates: start: 20221216, end: 20221219
  5. DICLOFENAC SODIUM [Concomitant]
     Active Substance: DICLOFENAC SODIUM
     Indication: Viral upper respiratory tract infection
     Dosage: .1 GRAM, OD
     Route: 048
     Dates: start: 20221214, end: 20221215
  6. DICLOFENAC SODIUM [Concomitant]
     Active Substance: DICLOFENAC SODIUM
     Indication: Pyrexia
  7. IBUPROFEN [Concomitant]
     Active Substance: IBUPROFEN
     Indication: Viral upper respiratory tract infection
     Dosage: 0.3 GRAM, OD
     Route: 048
     Dates: start: 20221215, end: 20221216

REACTIONS (3)
  - White blood cell count decreased [Recovering/Resolving]
  - Pseudomonas infection [Unknown]
  - Escherichia infection [Unknown]

NARRATIVE: CASE EVENT DATE: 20221218
